FAERS Safety Report 13400072 (Version 4)
Quarter: 2018Q4

REPORT INFORMATION
  Report Type: Report from Study
  Country: US (occurrence: US)
  Receive Date: 20170404
  Receipt Date: 20181005
  Transmission Date: 20190204
  Serious: Yes (Other)
  Sender: FDA-Public Use
  Company Number: US-009507513-1703USA013729

PATIENT
  Age: 67 Year
  Sex: Female

DRUGS (9)
  1. ZETIA [Suspect]
     Active Substance: EZETIMIBE
     Indication: DIABETES MELLITUS
     Dosage: ONE 10 MG TABLET, DAILY
     Route: 048
     Dates: start: 2017
  2. AMIODARONE HYDROCHLORIDE. [Concomitant]
     Active Substance: AMIODARONE HYDROCHLORIDE
     Dosage: UNK
  3. CLONIDINE. [Concomitant]
     Active Substance: CLONIDINE
     Dosage: UNK
  4. ZETIA [Suspect]
     Active Substance: EZETIMIBE
     Indication: BLOOD CHOLESTEROL INCREASED
  5. BYSTOLIC [Concomitant]
     Active Substance: NEBIVOLOL HYDROCHLORIDE
     Dosage: UNK
  6. TOUJEO [Concomitant]
     Active Substance: INSULIN GLARGINE
     Dosage: UNK
  7. WARFARIN [Concomitant]
     Active Substance: WARFARIN
     Dosage: UNK
  8. FUROSEMIDE. [Concomitant]
     Active Substance: FUROSEMIDE
     Dosage: UNK
     Route: 048
  9. NOVOLOG [Concomitant]
     Active Substance: INSULIN ASPART
     Dosage: UNK

REACTIONS (9)
  - Road traffic accident [Unknown]
  - Ocular hyperaemia [Unknown]
  - Product dose omission [Unknown]
  - Adverse event [Unknown]
  - Blood glucose increased [Not Recovered/Not Resolved]
  - Product quality issue [Unknown]
  - Angina pectoris [Not Recovered/Not Resolved]
  - Carotid artery occlusion [Unknown]
  - Cataract [Unknown]

NARRATIVE: CASE EVENT DATE: 20170324
